FAERS Safety Report 15419773 (Version 1)
Quarter: 2018Q3

REPORT INFORMATION
  Report Type: Spontaneous
  Country: US (occurrence: US)
  Receive Date: 20180924
  Receipt Date: 20180924
  Transmission Date: 20181010
  Serious: No
  Sender: FDA-Public Use
  Company Number: US-ASTRAZENECA-2018SF23267

PATIENT
  Age: 28929 Day
  Sex: Male
  Weight: 97.5 kg

DRUGS (4)
  1. BEVESPI AEROSPHERE [Suspect]
     Active Substance: FORMOTEROL FUMARATE\GLYCOPYRROLATE
     Indication: PULMONARY FIBROSIS
     Dosage: TWO INHALATIONS TWICE A DAY
     Route: 055
     Dates: start: 20180913
  2. BEVESPI AEROSPHERE [Suspect]
     Active Substance: FORMOTEROL FUMARATE\GLYCOPYRROLATE
     Indication: CHRONIC OBSTRUCTIVE PULMONARY DISEASE
     Dosage: TWO INHALATIONS TWICE A DAY
     Route: 055
     Dates: start: 20180913
  3. BEVESPI AEROSPHERE [Suspect]
     Active Substance: FORMOTEROL FUMARATE\GLYCOPYRROLATE
     Indication: EMPHYSEMA
     Dosage: TWO INHALATIONS TWICE A DAY
     Route: 055
     Dates: start: 20180913
  4. HYDROXYZINE HYDROCHLORIDE. [Concomitant]
     Active Substance: HYDROXYZINE HYDROCHLORIDE
     Indication: HYPERSENSITIVITY
     Dosage: UNKNOWN
     Route: 065

REACTIONS (4)
  - Somnolence [Unknown]
  - Drug intolerance [Unknown]
  - Limb discomfort [Unknown]
  - Asthenopia [Unknown]

NARRATIVE: CASE EVENT DATE: 20180913
